FAERS Safety Report 7539955-5 (Version None)
Quarter: 2011Q2

REPORT INFORMATION
  Report Type: 
  Country: None (occurrence: None)
  Receive Date: 20110603
  Receipt Date: 20110525
  Transmission Date: 20111010
  Serious: Yes (Death)
  Sender: FDA-Public Use
  Company Number: 2009AC000527

PATIENT
  Age: 60 Year
  Sex: Male

DRUGS (9)
  1. LUNESTA [Concomitant]
  2. ZESTRIL [Concomitant]
  3. COUMADIN [Concomitant]
  4. ISMO [Concomitant]
  5. TOPROL-XL [Concomitant]
  6. HYDROCHLOROTHIAZIDE [Concomitant]
  7. DIGOXIN [Suspect]
     Dosage: .250 MG;QD;PO
     Route: 048
     Dates: start: 20050128
  8. VICODIN [Concomitant]
  9. NORVASC [Concomitant]

REACTIONS (34)
  - COLON CANCER [None]
  - BACK PAIN [None]
  - NEPHROLITHIASIS [None]
  - IRON DEFICIENCY ANAEMIA [None]
  - WEIGHT DECREASED [None]
  - BLOOD GLUCOSE INCREASED [None]
  - HAEMATURIA [None]
  - PROSTATOMEGALY [None]
  - FATIGUE [None]
  - GASTROENTERITIS [None]
  - ECONOMIC PROBLEM [None]
  - MULTIPLE INJURIES [None]
  - UNEVALUABLE EVENT [None]
  - PROSTATITIS [None]
  - INGUINAL HERNIA [None]
  - RECTAL POLYP [None]
  - MYOCARDIAL ISCHAEMIA [None]
  - CARDIAC FAILURE CONGESTIVE [None]
  - INSOMNIA [None]
  - ATRIAL FIBRILLATION [None]
  - GROIN PAIN [None]
  - DYSURIA [None]
  - POLLAKIURIA [None]
  - REFUSAL OF TREATMENT BY RELATIVE [None]
  - BLOOD URINE PRESENT [None]
  - DECREASED APPETITE [None]
  - BLOOD SODIUM DECREASED [None]
  - BLADDER DILATATION [None]
  - HYPERTENSION [None]
  - FAMILY STRESS [None]
  - FLANK PAIN [None]
  - BLOOD UREA DECREASED [None]
  - POLYPECTOMY [None]
  - ABDOMINAL PAIN [None]
